FAERS Safety Report 4951054-5 (Version None)
Quarter: 2006Q1

REPORT INFORMATION
  Report Type: 
  Country: None (occurrence: None)
  Receive Date: 20060317
  Receipt Date: 20060308
  Transmission Date: 20060701
  Serious: Yes (Other)
  Sender: FDA-Public Use
  Company Number: GB200603001987

PATIENT
  Age: 23 Year
  Sex: Male

DRUGS (1)
  1. XIGRIS [Suspect]
     Dates: start: 20060307

REACTIONS (1)
  - THROMBOCYTOPENIA [None]
